FAERS Safety Report 16160587 (Version 3)
Quarter: 2019Q3

REPORT INFORMATION
  Report Type: Spontaneous
  Country: US (occurrence: US)
  Receive Date: 20190405
  Receipt Date: 20190927
  Transmission Date: 20191004
  Serious: Yes (Other)
  Sender: FDA-Public Use
  Company Number: US-TEVA-2019-US-1026246

PATIENT
  Sex: Male
  Weight: 97.61 kg

DRUGS (14)
  1. HYDROCODONE BITARTRATE AND ACETAMINOPHEN [Concomitant]
     Active Substance: ACETAMINOPHEN\HYDROCODONE BITARTRATE
     Dosage: STEPPED DOWN ON HYDROCO/APAP 10/325; HAD BEEN TAKING 10-500 OR 10-325 3 TIMES DAILY SINCE 2011
     Dates: start: 2011
  2. ZOLPIDEM [Concomitant]
     Active Substance: ZOLPIDEM TARTRATE
     Dosage: 12 ML DROPS 4 MLS UNDER TONGUE AT BEDTIME
  3. LISINOPRIL. [Concomitant]
     Active Substance: LISINOPRIL
     Dosage: 40 MILLIGRAM DAILY;
  4. GABAPENTIN ACTAVIS [Suspect]
     Active Substance: GABAPENTIN
     Indication: NEURALGIA
     Dosage: 1200 MILLIGRAM DAILY;
     Route: 048
     Dates: start: 201810, end: 20190529
  5. HYDRALAZINE [Concomitant]
     Active Substance: HYDRALAZINE HYDROCHLORIDE
     Dosage: 75 MILLIGRAM DAILY;
  6. ZTLIDO [Concomitant]
     Active Substance: LIDOCAINE
     Dosage: 1.8 EVERY 12 HOURS
  7. AMLODIPINE [Concomitant]
     Active Substance: AMLODIPINE BESYLATE
     Dosage: 5 MILLIGRAM DAILY;
  8. NEXIUM [Concomitant]
     Active Substance: ESOMEPRAZOLE MAGNESIUM
     Dosage: 22.3 MILLIGRAM DAILY;
  9. TOPIRAMATE. [Concomitant]
     Active Substance: TOPIRAMATE
     Dosage: 2 TABLETS AT BEDTIME
  10. BAYER ASPIRIN [Concomitant]
     Active Substance: ASPIRIN
     Dosage: 81 MILLIGRAM DAILY;
  11. CARVEDILOL. [Concomitant]
     Active Substance: CARVEDILOL
     Dosage: 3.1
  12. BELBUCA [Concomitant]
     Active Substance: BUPRENORPHINE HYDROCHLORIDE
     Dosage: 600 MICROGRAM DAILY;
     Route: 002
  13. AMBIEN [Concomitant]
     Active Substance: ZOLPIDEM TARTRATE
     Route: 065
  14. LIDODERM [Concomitant]
     Active Substance: LIDOCAINE
     Route: 065

REACTIONS (3)
  - Penile curvature [Unknown]
  - Expired product administered [Unknown]
  - Peyronie^s disease [Not Recovered/Not Resolved]
